FAERS Safety Report 11939807 (Version 4)
Quarter: 2016Q1

REPORT INFORMATION
  Report Type: Spontaneous
  Country: US (occurrence: US)
  Receive Date: 20160122
  Receipt Date: 20160322
  Transmission Date: 20160526
  Serious: Yes (Other)
  Sender: FDA-Public Use
  Company Number: US-JNJFOC-20160111819

PATIENT
  Sex: Female
  Weight: 45.36 kg

DRUGS (5)
  1. ULTRAM [Suspect]
     Active Substance: TRAMADOL HYDROCHLORIDE
     Indication: FIBROMYALGIA
     Route: 048
     Dates: start: 2004
  2. NAPROXEN. [Suspect]
     Active Substance: NAPROXEN
     Indication: PAIN
     Route: 065
  3. OXYCONTIN [Suspect]
     Active Substance: OXYCODONE HYDROCHLORIDE
     Indication: PAIN
     Route: 065
  4. ULTRAM [Suspect]
     Active Substance: TRAMADOL HYDROCHLORIDE
     Indication: FIBROMYALGIA
     Dosage: (2 TABLETS TWICE A DAY)
     Route: 048
  5. ULTRAM [Suspect]
     Active Substance: TRAMADOL HYDROCHLORIDE
     Indication: FIBROMYALGIA
     Dosage: 50 MG TABLETS EVERY 4-6 HOURS
     Route: 048
     Dates: start: 2004, end: 2004

REACTIONS (18)
  - Disturbance in attention [Unknown]
  - Bedridden [Unknown]
  - Adverse event [Unknown]
  - Palpitations [Unknown]
  - Withdrawal syndrome [Unknown]
  - Movement disorder [Unknown]
  - Incorrect dose administered [Unknown]
  - Feeling of body temperature change [Unknown]
  - Fatigue [Unknown]
  - Drug dose omission [Unknown]
  - Pain [Unknown]
  - Activities of daily living impaired [Unknown]
  - Impaired driving ability [Unknown]
  - Drug ineffective [Unknown]
  - Surgery [Unknown]
  - Shock [Unknown]
  - Restlessness [Unknown]
  - Anxiety [Unknown]
